FAERS Safety Report 6322596-5 (Version None)
Quarter: 2009Q3

REPORT INFORMATION
  Report Type: 
  Country: None (occurrence: None)
  Receive Date: 20090824
  Receipt Date: 20090227
  Transmission Date: 20100115
  Serious: No
  Sender: FDA-Public Use
  Company Number: US-ABBOTT-09P-163-0560206-00

PATIENT
  Sex: Female

DRUGS (22)
  1. NIASPAN [Suspect]
     Indication: BLOOD TRIGLYCERIDES INCREASED
     Dates: start: 20090220
  2. ASPIRIN [Concomitant]
     Indication: CORONARY ARTERY BYPASS
     Dosage: 81MG IN AM AND 2 TABS AT NIGHT
  3. ISOSORBIDE MON ER [Concomitant]
     Indication: HYPERTENSION
  4. PLAVIX [Concomitant]
     Indication: ARTERIOSCLEROSIS CORONARY ARTERY
  5. METROPROLOL SUCC [Concomitant]
     Indication: HYPERTENSION
  6. LEVOTHYROXINE SODIUM [Concomitant]
     Indication: THYROID DISORDER
  7. ALLOPURINOL [Concomitant]
     Indication: GOUT
  8. OMEPRAZOLE [Concomitant]
     Indication: OESOPHAGEAL ULCER
  9. NOVALOG INSULIN 70/30 [Concomitant]
     Indication: TYPE 2 DIABETES MELLITUS
     Dosage: 48UNITS IN AM, 40 UNITS IN EVENING BEFORE DINNER
  10. CALCIUM [Concomitant]
     Indication: DRUG USE FOR UNKNOWN INDICATION
  11. GLUCOSOMINE COGENTIN [Concomitant]
     Indication: DRUG USE FOR UNKNOWN INDICATION
  12. MAGNESIUM [Concomitant]
     Indication: DRUG USE FOR UNKNOWN INDICATION
  13. ONE A DAY [Concomitant]
     Indication: DRUG USE FOR UNKNOWN INDICATION
  14. CYMBALTA [Concomitant]
     Indication: DEPRESSION
  15. ISTALOL [Concomitant]
     Indication: PROPHYLAXIS
     Dosage: APPLY TO EACH EYE EVERY MORNING
  16. ISTALOL [Concomitant]
  17. SIMVASTATIN [Concomitant]
     Indication: BLOOD CHOLESTEROL INCREASED
  18. TEMAZEPAM [Concomitant]
     Indication: INSOMNIA
     Dosage: PRN
  19. FUROSEMIDE [Concomitant]
     Indication: SWELLING
  20. XALATAN [Concomitant]
     Indication: GLAUCOMA
     Dosage: 1 DROP IN EACH EYE EVERY EVENING
  21. XALATAN [Concomitant]
  22. FENOFIBRATE [Concomitant]
     Indication: BLOOD TRIGLYCERIDES INCREASED

REACTIONS (1)
  - EPISTAXIS [None]
